FAERS Safety Report 16638978 (Version 5)
Quarter: 2020Q1

REPORT INFORMATION
  Report Type: Spontaneous
  Country: JP (occurrence: JP)
  Receive Date: 20190726
  Receipt Date: 20200330
  Transmission Date: 20200409
  Serious: Yes (Death, Hospitalization, Other)
  Sender: FDA-Public Use
  Company Number: JP-SHIRE-JP201923863

PATIENT

DRUGS (7)
  1. ELAPRASE [Suspect]
     Active Substance: IDURSULFASE
     Indication: MUCOPOLYSACCHARIDOSIS II
     Dosage: UNK
     Route: 041
     Dates: start: 200712
  2. ELAPRASE [Suspect]
     Active Substance: IDURSULFASE
     Dosage: 18 MILLIGRAM, 1X/WEEK
     Route: 041
     Dates: start: 20140203, end: 2019
  3. ELAPRASE [Suspect]
     Active Substance: IDURSULFASE
     Dosage: 18 MILLIGRAM, 1X/WEEK
     Route: 041
     Dates: start: 201907, end: 201908
  4. ELAPRASE [Suspect]
     Active Substance: IDURSULFASE
     Dosage: 18 MILLIGRAM, 1X/WEEK
     Route: 041
     Dates: start: 201909, end: 20200213
  5. PHENOBAL [PHENOBARBITAL] [Concomitant]
     Active Substance: PHENOBARBITAL
     Indication: PRODUCT USED FOR UNKNOWN INDICATION
  6. GASMOTIN [Concomitant]
     Active Substance: MOSAPRIDE CITRATE
     Indication: PRODUCT USED FOR UNKNOWN INDICATION
  7. ONON [Concomitant]
     Active Substance: PRANLUKAST
     Indication: PRODUCT USED FOR UNKNOWN INDICATION

REACTIONS (7)
  - Ascites [Recovering/Resolving]
  - Pleural effusion [Unknown]
  - Respiratory failure [Fatal]
  - Urinary tract infection [Unknown]
  - Bile duct stone [Unknown]
  - Cholelithiasis [Recovering/Resolving]
  - Pneumonia respiratory syncytial viral [Recovering/Resolving]

NARRATIVE: CASE EVENT DATE: 20190704
